FAERS Safety Report 5752131-1 (Version None)
Quarter: 2008Q2

REPORT INFORMATION
  Report Type: 
  Country: None (occurrence: None)
  Receive Date: 20080529
  Receipt Date: 20080418
  Transmission Date: 20081010
  Serious: No
  Sender: FDA-Public Use
  Company Number: US-BAUSCH-2008BL001743

PATIENT
  Age: 79 Year
  Sex: Male

DRUGS (4)
  1. OFLOXACIN OPHTHALMIC SOLUTION 0.3% [Suspect]
     Indication: OFF LABEL USE
     Route: 001
     Dates: start: 20080110, end: 20080112
  2. OFLOXACIN OPHTHALMIC SOLUTION 0.3% [Suspect]
     Indication: EAR INFECTION
     Route: 001
     Dates: start: 20080110, end: 20080112
  3. TESTOSTERONE [Concomitant]
     Indication: BLOOD TESTOSTERONE DECREASED
     Route: 030
  4. IBUPROFEN [Concomitant]

REACTIONS (6)
  - CONDITION AGGRAVATED [None]
  - DIZZINESS [None]
  - DRUG INEFFECTIVE FOR UNAPPROVED INDICATION [None]
  - EAR INFECTION [None]
  - FEELING ABNORMAL [None]
  - HYPOACUSIS [None]
